FAERS Safety Report 25334277 (Version 2)
Quarter: 2025Q2

REPORT INFORMATION
  Report Type: Report from Study
  Country: US (occurrence: US)
  Receive Date: 20250520
  Receipt Date: 20250612
  Transmission Date: 20250717
  Serious: No
  Sender: SUNOVION
  Company Number: US-SUMITOMO PHARMA SWITZERLAND GMBH-2025SPA005738

PATIENT

DRUGS (4)
  1. ORGOVYX [Suspect]
     Active Substance: RELUGOLIX
     Indication: Prostate cancer
     Dosage: 360 MG, SINGLE
     Route: 048
     Dates: start: 20250413, end: 20250413
  2. ORGOVYX [Suspect]
     Active Substance: RELUGOLIX
     Dosage: 120 MG, QD
     Route: 048
     Dates: start: 20250414
  3. AMLODIPINE [Concomitant]
     Active Substance: AMLODIPINE BESYLATE
     Route: 065
  4. LOSARTAN [Concomitant]
     Active Substance: LOSARTAN
     Route: 065

REACTIONS (12)
  - Anger [Unknown]
  - Stress [Unknown]
  - Decreased appetite [Unknown]
  - Muscular weakness [Unknown]
  - Chills [Unknown]
  - Loss of personal independence in daily activities [Unknown]
  - Irritability [Unknown]
  - Mood swings [Unknown]
  - Night sweats [Unknown]
  - Myalgia [Unknown]
  - Depression [Unknown]
  - Hot flush [Unknown]
